FAERS Safety Report 20838651 (Version 1)
Quarter: 2022Q2

REPORT INFORMATION
  Report Type: Spontaneous
  Country: US (occurrence: US)
  Receive Date: 20220517
  Receipt Date: 20220517
  Transmission Date: 20220720
  Serious: No
  Sender: FDA-Public Use
  Company Number: US-BAYER-2022A067785

PATIENT
  Age: 55 Year
  Sex: Female

DRUGS (1)
  1. MIRENA [Suspect]
     Active Substance: LEVONORGESTREL
     Indication: Postmenopausal haemorrhage
     Dosage: 20?G/DAY
     Route: 015
     Dates: start: 20220509, end: 20220509

REACTIONS (5)
  - Off label use of device [Unknown]
  - Device use issue [None]
  - Device deployment issue [None]
  - Device placement issue [None]
  - Complication of device insertion [None]

NARRATIVE: CASE EVENT DATE: 20220509
